FAERS Safety Report 11981934 (Version 1)
Quarter: 2016Q1

REPORT INFORMATION
  Report Type: Spontaneous
  Country: US (occurrence: None)
  Receive Date: 20160129
  Receipt Date: 20160129
  Transmission Date: 20160526
  Serious: No
  Sender: FDA-Public Use
  Company Number: None

PATIENT
  Age: 65 Year
  Sex: Male

DRUGS (3)
  1. SUTENT [Suspect]
     Active Substance: SUNITINIB MALATE
     Indication: RENAL CELL CARCINOMA
     Dosage: QD FOR 4 WEEKS ON THEN 2 WEEKS OFF
     Route: 048
     Dates: start: 20151207
  2. OXYCODONE/APAP [Concomitant]
     Active Substance: ACETAMINOPHEN\OXYCODONE HYDROCHLORIDE
     Indication: RENAL CELL CARCINOMA
     Dosage: 37.5MG CAP QD FOR 4WEEKS ON THEN 2 WEEKS OFF PO
     Route: 048
     Dates: start: 20151207
  3. DIPHEN/ATORP [Concomitant]

REACTIONS (1)
  - Renal pain [None]

NARRATIVE: CASE EVENT DATE: 201601
